FAERS Safety Report 23540293 (Version 1)
Quarter: 2024Q1

REPORT INFORMATION
  Report Type: Spontaneous
  Country: US (occurrence: US)
  Receive Date: 20240219
  Receipt Date: 20240219
  Transmission Date: 20240410
  Serious: No
  Sender: FDA-Public Use
  Company Number: US-Stemline Therapeutics, Inc.-2023ST004102

PATIENT
  Age: 76 Year
  Sex: Female

DRUGS (2)
  1. ORSERDU [Suspect]
     Active Substance: ELACESTRANT
     Indication: Product used for unknown indication
     Route: 048
     Dates: start: 20230907
  2. IBRANCE [Concomitant]
     Active Substance: PALBOCICLIB
     Indication: Product used for unknown indication

REACTIONS (5)
  - Red blood cell count abnormal [Unknown]
  - Haemoglobin abnormal [Unknown]
  - Metastases to bone [Unknown]
  - Solar lentigo [Unknown]
  - Haematocrit [Unknown]

NARRATIVE: CASE EVENT DATE: 20231219
